FAERS Safety Report 7973761-2 (Version None)
Quarter: 2011Q4

REPORT INFORMATION
  Report Type: 
  Country: None (occurrence: None)
  Receive Date: 20111213
  Receipt Date: 20111206
  Transmission Date: 20120403
  Serious: Yes (Other)
  Sender: FDA-Public Use
  Company Number: PHHY2011MX107876

PATIENT
  Sex: Female

DRUGS (2)
  1. ZOLEDRONOC ACID [Suspect]
     Indication: OSTEOPOROSIS
     Dosage: 5 MG/ 100 ML, ONCE A YEAR
     Route: 042
     Dates: start: 20110422
  2. CALCIUM CARBONATE [Concomitant]
     Indication: OSTEOPOROSIS
     Dosage: UNK UKN, ONCE/SINGLE
     Dates: start: 20110401

REACTIONS (4)
  - HEADACHE [None]
  - AMNESIA [None]
  - BONE PAIN [None]
  - DIZZINESS [None]
